FAERS Safety Report 19225288 (Version 1)
Quarter: 2021Q2

REPORT INFORMATION
  Report Type: Report from Study
  Country: CA (occurrence: CA)
  Receive Date: 20210506
  Receipt Date: 20210506
  Transmission Date: 20210717
  Serious: Yes (Other)
  Sender: FDA-Public Use
  Company Number: CA-SAMSUNG BIOEPIS-SB-2021-05478

PATIENT
  Age: 72 Year
  Sex: Male

DRUGS (1)
  1. RENFLEXIS [Suspect]
     Active Substance: INFLIXIMAB-ABDA
     Indication: CROHN^S DISEASE
     Route: 042
     Dates: start: 20191031, end: 20201229

REACTIONS (4)
  - Immunodeficiency [Unknown]
  - Dysphagia [Not Recovered/Not Resolved]
  - Exposure to SARS-CoV-2 [Unknown]
  - Abdominal discomfort [Not Recovered/Not Resolved]
